FAERS Safety Report 5787250-7 (Version None)
Quarter: 2008Q2

REPORT INFORMATION
  Report Type: 
  Country: None (occurrence: None)
  Receive Date: 20080625
  Receipt Date: 20070924
  Transmission Date: 20081010
  Serious: No
  Sender: FDA-Public Use
  Company Number: US-ASTRAZENECA-2007UW22359

PATIENT
  Age: 76 Year
  Sex: Female
  Weight: 53.5 kg

DRUGS (2)
  1. PULMICORT RESPULES [Suspect]
     Indication: CHRONIC OBSTRUCTIVE PULMONARY DISEASE
     Route: 055
     Dates: start: 20070101
  2. ALBUTEROL [Concomitant]

REACTIONS (2)
  - APHONIA [None]
  - DYSPHONIA [None]
